FAERS Safety Report 8587056-X (Version None)
Quarter: 2012Q3

REPORT INFORMATION
  Report Type: 
  Country: None (occurrence: None)
  Receive Date: 20120810
  Receipt Date: 20120807
  Transmission Date: 20120928
  Serious: Yes (Death)
  Sender: FDA-Public Use
  Company Number: AU-ROCHE-1098974

PATIENT
  Sex: Male

DRUGS (1)
  1. RANIBIZUMAB [Suspect]
     Indication: AGE-RELATED MACULAR DEGENERATION
     Dates: start: 20120403, end: 20120403

REACTIONS (2)
  - CIRCULATORY COLLAPSE [None]
  - MYOCARDIAL INFARCTION [None]
